FAERS Safety Report 8814354 (Version 2)
Quarter: 2012Q4

REPORT INFORMATION
  Report Type: 
  Country: US (occurrence: US)
  Receive Date: 20120928
  Receipt Date: 20121029
  Transmission Date: 20130627
  Serious: No
  Sender: FDA-Public Use
  Company Number: US-009507513-1209USA009315

PATIENT
  Sex: Male
  Weight: 82.63 kg

DRUGS (3)
  1. PEGINTRON [Suspect]
     Indication: HEPATITIS C
     Dosage: 150 Microgram, 150/0.5
     Route: 058
     Dates: start: 20120822
  2. RIBAPAK [Suspect]
     Indication: HEPATITIS C
     Dosage: 800 mg, qd
     Route: 048
     Dates: start: 20120822
  3. PRILOSEC [Concomitant]
     Indication: GASTROOESOPHAGEAL REFLUX DISEASE
     Dosage: UNK
     Route: 048
     Dates: start: 20120419

REACTIONS (3)
  - Rash papular [Unknown]
  - Drug dose omission [Unknown]
  - Product quality issue [Unknown]
